FAERS Safety Report 5506008-7 (Version None)
Quarter: 2007Q4

REPORT INFORMATION
  Report Type: 
  Country: None (occurrence: None)
  Receive Date: 20071105
  Receipt Date: 20071025
  Transmission Date: 20080405
  Serious: Yes (Hospitalization)
  Sender: FDA-Public Use
  Company Number: DE-NOVOPROD-266961

PATIENT
  Sex: Female
  Weight: 59 kg

DRUGS (8)
  1. INSULIN DETEMIR FLEXPEN NN729 [Suspect]
     Indication: TYPE 1 DIABETES MELLITUS
     Dosage: 18 IU, QD
     Route: 058
     Dates: start: 20070426, end: 20070820
  2. INSULIN DETEMIR FLEXPEN NN729 [Suspect]
     Dosage: 16 IU, QD
     Route: 058
     Dates: start: 20070823
  3. NOVORAPID FLEXPEN [Suspect]
     Indication: TYPE 1 DIABETES MELLITUS
     Dosage: 15 IU, QD
     Route: 058
     Dates: start: 20070426, end: 20070820
  4. NOVORAPID FLEXPEN [Suspect]
     Dosage: 16 IU, QD
     Route: 058
     Dates: start: 20070823
  5. SIMVASTATIN [Concomitant]
     Dosage: UNK MG, QD
     Route: 048
     Dates: start: 20070501
  6. ACETYLSALICYLIC ACID SRT [Concomitant]
     Dosage: UNK MG, QD
     Route: 048
     Dates: start: 20020101
  7. RAMIPRIL [Concomitant]
     Dosage: UNK, QD
     Route: 048
     Dates: start: 20070208
  8. DIAZEPAM [Concomitant]
     Dosage: UNK, QD
     Route: 048
     Dates: start: 20010101

REACTIONS (3)
  - CEREBRAL HAEMORRHAGE [None]
  - HYPOGLYCAEMIC UNCONSCIOUSNESS [None]
  - SKULL FRACTURE [None]
